FAERS Safety Report 8318900-9 (Version None)
Quarter: 2012Q2

REPORT INFORMATION
  Report Type: 
  Country: None (occurrence: None)
  Receive Date: 20120426
  Receipt Date: 20120426
  Transmission Date: 20120825
  Serious: Yes (Hospitalization)
  Sender: FDA-Public Use
  Company Number: None

PATIENT
  Sex: Female

DRUGS (1)
  1. TUBERSOL [Suspect]
     Indication: TUBERCULIN TEST
     Dosage: 5 US UNITS 0 0.1 ML. TUBERSOL ANNUAL TB SKIN TEST INTRADERMAL
     Route: 023
     Dates: start: 20120403

REACTIONS (2)
  - SWELLING FACE [None]
  - URTICARIA [None]
